FAERS Safety Report 5800590-8 (Version None)
Quarter: 2008Q3

REPORT INFORMATION
  Report Type: 
  Country: None (occurrence: None)
  Receive Date: 20080702
  Receipt Date: 20080702
  Transmission Date: 20090109
  Serious: Yes (Other)
  Sender: FDA-Public Use
  Company Number: None

PATIENT
  Sex: Female
  Weight: 56.6996 kg

DRUGS (1)
  1. TERBINAFINE HCL [Suspect]
     Indication: ONYCHOMYCOSIS
     Dosage: 1 TAB;ET PER DAY PO
     Route: 048
     Dates: start: 20080515, end: 20080614

REACTIONS (7)
  - AGEUSIA [None]
  - DYSGEUSIA [None]
  - EATING DISORDER [None]
  - FEELING ABNORMAL [None]
  - HUNGER [None]
  - RETCHING [None]
  - WEIGHT DECREASED [None]
